FAERS Safety Report 8241941 (Version 5)
Quarter: 2014Q1

REPORT INFORMATION
  Report Type: Report from Study
  Country: DE (occurrence: DE)
  Receive Date: 20111111
  Receipt Date: 20140228
  Transmission Date: 20141002
  Serious: Yes (Hospitalization)
  Sender: FDA-Public Use
  Company Number: PHHY2011DE85802

PATIENT
  Age: 69 Year
  Sex: Female
  Weight: 97 kg

DRUGS (18)
  1. AMN107 [Suspect]
     Indication: CHRONIC MYELOID LEUKAEMIA
     Dosage: 400 MG, PER DAY
     Route: 048
     Dates: start: 20100104
  2. AMN107 [Suspect]
     Dosage: 800 MG, PER DAY
     Route: 048
     Dates: start: 20100215
  3. AMN107 [Suspect]
     Dosage: 400 MG, PER DAY
     Route: 048
     Dates: start: 20100510
  4. LEVOPAR [Concomitant]
  5. MOXONIDINE [Concomitant]
  6. AMITRIPTYLINE [Concomitant]
  7. ASS [Concomitant]
  8. VITAMIN D [Concomitant]
     Dates: start: 20120228
  9. PANTOPRAZOL [Concomitant]
  10. FUROSEMIDE [Concomitant]
     Dates: end: 20130530
  11. SIMVASTATIN [Concomitant]
  12. MOVICOL [Concomitant]
  13. HCT [Concomitant]
     Dates: start: 20130530
  14. RESOLOR [Concomitant]
     Dates: start: 20130530
  15. VALSARTAN [Concomitant]
  16. SYMBICORT [Concomitant]
  17. ALLOPURINOL [Concomitant]
  18. BISOPROLOL [Concomitant]

REACTIONS (14)
  - Cerebral infarction [Recovered/Resolved]
  - Cerebrovascular accident [Recovered/Resolved]
  - Asthenia [Recovered/Resolved]
  - Transient ischaemic attack [Recovered/Resolved]
  - Abdominal pain lower [Recovered/Resolved]
  - Pyrexia [Recovered/Resolved]
  - Chills [Recovered/Resolved]
  - Diarrhoea [Recovered/Resolved]
  - Enteritis [Unknown]
  - Cough [Recovered/Resolved]
  - Constipation [Recovered/Resolved]
  - Rectal haemorrhage [Recovered/Resolved]
  - Hypertension [Unknown]
  - Food allergy [Unknown]
